FAERS Safety Report 4828577-2 (Version None)
Quarter: 2005Q4

REPORT INFORMATION
  Report Type: 
  Country: None (occurrence: None)
  Receive Date: 20051115
  Receipt Date: 20051109
  Transmission Date: 20060501
  Serious: Yes (Life-Threatening)
  Sender: FDA-Public Use
  Company Number: 2005AP05812

PATIENT
  Age: 27322 Day
  Sex: Male

DRUGS (1)
  1. NEXIUM [Suspect]
     Dates: start: 20050627

REACTIONS (6)
  - BLOOD PRESSURE DECREASED [None]
  - BLOOD PRESSURE SYSTOLIC DECREASED [None]
  - CIRCULATORY COLLAPSE [None]
  - FALL [None]
  - LETHARGY [None]
  - SYNCOPE [None]
